FAERS Safety Report 8546583-1 (Version None)
Quarter: 2012Q3

REPORT INFORMATION
  Report Type: 
  Country: None (occurrence: None)
  Receive Date: 20120727
  Receipt Date: 20111228
  Transmission Date: 20120928
  Serious: No
  Sender: FDA-Public Use
  Company Number: US-ASTRAZENECA-2011SE78782

PATIENT
  Sex: Female
  Weight: 116.1 kg

DRUGS (33)
  1. SEROQUEL [Suspect]
     Route: 048
     Dates: start: 20080331
  2. KLONOPIN [Concomitant]
     Dosage: 0.5 MG PO FOUR TIMES DAILY PRN
     Route: 048
  3. ABILIFY [Concomitant]
  4. AMITRIPTYLENE [Concomitant]
     Route: 048
  5. SINGULAIR [Concomitant]
     Dates: start: 20071106
  6. VALIUM [Concomitant]
     Dosage: 10 THREE TIMES DAILY
  7. ZANAFLEX [Concomitant]
     Dosage: 2 MG ONE PO TID 4X DAILY
     Route: 048
  8. AVINZA [Concomitant]
     Dates: end: 20070720
  9. PROZAC [Concomitant]
     Dosage: 20 MG PO ONCE DAILY INCREASED TO 40
     Route: 048
     Dates: end: 20070201
  10. LEXAPRO [Concomitant]
     Route: 048
  11. ESTRADIOL [Concomitant]
     Route: 048
  12. EFFEXOR [Concomitant]
  13. PERCOCET [Concomitant]
     Dosage: 5/325 ONE PO TWICE DAILY PRN
     Route: 048
  14. AMRIX [Concomitant]
     Dates: start: 20080903
  15. BONINE [Concomitant]
     Dosage: PRN
  16. LORAZEPAM [Concomitant]
     Dosage: 1 MG 1 PO TWICE DAILY AND 2 QHS
     Route: 048
  17. LASIX [Concomitant]
     Dosage: 20 MG PO ONCE DAILY PRN
     Route: 048
  18. ZETIA [Concomitant]
     Route: 048
  19. OXYCONTIN [Concomitant]
     Dosage: 30 TWICE DAILY
     Route: 048
  20. LUNESTA [Concomitant]
  21. NEXIUM [Concomitant]
  22. BYETTA [Concomitant]
     Dosage: 500 1 SO TWICE DAILY
     Dates: start: 20090301
  23. DARVON-N [Concomitant]
     Dosage: 100, 1 PO EVERY 6 HOURS
     Route: 048
     Dates: end: 20060419
  24. DOXYCYCLINE HCL [Concomitant]
  25. AMBIEN [Concomitant]
     Route: 048
  26. CYMBALTA [Concomitant]
     Route: 048
     Dates: start: 20080331
  27. FLEXERIL [Concomitant]
     Dosage: 10 MG PO TID TO QID PRN
     Route: 048
  28. GABITRIL [Concomitant]
  29. LAMICTAL [Concomitant]
     Route: 048
  30. CRESTOR [Concomitant]
  31. LIPITOR [Concomitant]
     Route: 048
  32. RISPERDAL [Concomitant]
     Route: 048
  33. VICODIN [Concomitant]
     Dosage: 1 PO EVERY 6 HOURS
     Route: 048

REACTIONS (8)
  - OESOPHAGITIS [None]
  - DYSPAREUNIA [None]
  - GASTROOESOPHAGEAL REFLUX DISEASE [None]
  - HERNIA [None]
  - FUNGAL INFECTION [None]
  - HEADACHE [None]
  - BACK PAIN [None]
  - ROCKY MOUNTAIN SPOTTED FEVER [None]
